FAERS Safety Report 8363936-5 (Version None)
Quarter: 2012Q2

REPORT INFORMATION
  Report Type: 
  Country: None (occurrence: None)
  Receive Date: 20120516
  Receipt Date: 20120210
  Transmission Date: 20120825
  Serious: Yes (Hospitalization)
  Sender: FDA-Public Use
  Company Number: US-ALEXION PHARMACEUTICALS INC.-A201200196

PATIENT
  Sex: Female
  Weight: 66.3 kg

DRUGS (9)
  1. SOLIRIS [Suspect]
     Indication: HAEMOLYTIC URAEMIC SYNDROME
     Dosage: 900 MG, UNK
     Route: 042
     Dates: start: 20120131
  2. CALCIUM CARBONATE [Concomitant]
     Dosage: 1250 MG, TID WITH MEALS
     Route: 048
  3. KEFLEX [Concomitant]
     Dosage: 500 MG, BID
     Route: 048
  4. REGLAN [Concomitant]
     Dosage: 5 MG, QD AC/HS
     Route: 048
  5. COREG [Concomitant]
     Dosage: 6.25 MG, QD
     Route: 048
  6. NORCO [Concomitant]
     Indication: PAIN
     Dosage: 5-325 MG Q6H PRN
     Route: 048
  7. MIRALAX [Concomitant]
     Dosage: UNK
  8. PROCARDIA XL [Concomitant]
     Dosage: 60 MG, QD
     Route: 048
  9. ZANAFLEX [Concomitant]
     Dosage: 4 MG, TID
     Route: 048

REACTIONS (2)
  - RENAL FAILURE [None]
  - WITHDRAWAL SYNDROME [None]
